FAERS Safety Report 21436374 (Version 1)
Quarter: 2022Q4

REPORT INFORMATION
  Report Type: Spontaneous
  Country: US (occurrence: US)
  Receive Date: 20221010
  Receipt Date: 20221010
  Transmission Date: 20230113
  Serious: Yes (Other)
  Sender: FDA-Public Use
  Company Number: US-ABBVIE-4146103

PATIENT
  Sex: Female

DRUGS (2)
  1. HUMIRA [Suspect]
     Active Substance: ADALIMUMAB
     Indication: Psoriasis
     Route: 058
  2. STELARA [Concomitant]
     Active Substance: USTEKINUMAB
     Indication: Product used for unknown indication

REACTIONS (10)
  - Cataract [Unknown]
  - Rash vesicular [Unknown]
  - Malaise [Unknown]
  - Abdominal discomfort [Unknown]
  - Eye pain [Unknown]
  - Product use in unapproved indication [Unknown]
  - Eye infection [Unknown]
  - Rash [Unknown]
  - Pain in extremity [Unknown]
  - Illness [Unknown]
